FAERS Safety Report 7028040-7 (Version None)
Quarter: 2010Q3

REPORT INFORMATION
  Report Type: 
  Country: None (occurrence: None)
  Receive Date: 20100930
  Receipt Date: 20100922
  Transmission Date: 20110219
  Serious: Yes (Other)
  Sender: FDA-Public Use
  Company Number: 2010SP044396

PATIENT
  Age: 23 Year
  Sex: Female

DRUGS (3)
  1. IMPLANON [Suspect]
     Indication: PRODUCT USED FOR UNKNOWN INDICATION
     Dosage: 1 DF ; 1 DF
     Dates: start: 20050101, end: 20071001
  2. IMPLANON [Suspect]
     Indication: PRODUCT USED FOR UNKNOWN INDICATION
     Dosage: 1 DF ; 1 DF
     Dates: start: 20071219
  3. IMPLANON [Suspect]

REACTIONS (6)
  - COMPLICATION OF DEVICE REMOVAL [None]
  - DEVICE DISLOCATION [None]
  - MUSCULAR WEAKNESS [None]
  - NERVE INJURY [None]
  - NEUROPATHY PERIPHERAL [None]
  - PAIN IN EXTREMITY [None]
